FAERS Safety Report 8595227-1 (Version None)
Quarter: 2012Q3

REPORT INFORMATION
  Report Type: 
  Country: None (occurrence: None)
  Receive Date: 20120815
  Receipt Date: 20120808
  Transmission Date: 20120928
  Serious: Yes (Other)
  Sender: FDA-Public Use
  Company Number: KR-UCBSA-063357

PATIENT
  Age: 25 Year
  Sex: Male

DRUGS (3)
  1. PHENYTOIN [Suspect]
     Route: 048
     Dates: start: 20120601, end: 20120808
  2. VALPROATE SODIUM [Concomitant]
  3. KEPPRA [Suspect]
     Indication: EPILEPSY
     Route: 048
     Dates: start: 20120806

REACTIONS (2)
  - PYELONEPHRITIS [None]
  - HEPATITIS ACUTE [None]
